FAERS Safety Report 6482580-8 (Version None)
Quarter: 2009Q4

REPORT INFORMATION
  Report Type: 
  Country: None (occurrence: None)
  Receive Date: 20091208
  Receipt Date: 20091020
  Transmission Date: 20100525
  Serious: No
  Sender: FDA-Public Use
  Company Number: US-AMGEN-KDL370336

PATIENT
  Sex: Female

DRUGS (1)
  1. ENBREL [Suspect]
     Indication: PSORIASIS
     Route: 058
     Dates: start: 20070215

REACTIONS (6)
  - DIARRHOEA [None]
  - FALL [None]
  - GLOSSODYNIA [None]
  - TONGUE INJURY [None]
  - TONGUE ULCERATION [None]
  - WOUND [None]
